FAERS Safety Report 23566880 (Version 2)
Quarter: 2025Q1

REPORT INFORMATION
  Report Type: Report from Study
  Country: US (occurrence: US)
  Receive Date: 20240226
  Receipt Date: 20250214
  Transmission Date: 20250408
  Serious: No
  Sender: AMNEAL
  Company Number: US-AMNEAL PHARMACEUTICALS-2023-AMRX-02613

PATIENT
  Age: 83 Year
  Sex: Female
  Weight: 51.247 kg

DRUGS (3)
  1. CARBIDOPA\LEVODOPA [Suspect]
     Active Substance: CARBIDOPA\LEVODOPA
     Indication: Parkinson^s disease
     Dosage: 48.75 MG-195 MG, 02 CAPSULES, 3 /DAY
     Route: 048
  2. CARBIDOPA\LEVODOPA [Suspect]
     Active Substance: CARBIDOPA\LEVODOPA
     Dosage: 36.25-145MG (TAKE 1 CAPSULE BY MOUTH FOUR TIMES A DAY)
     Route: 048
     Dates: start: 20240314
  3. CARBIDOPA\LEVODOPA [Suspect]
     Active Substance: CARBIDOPA\LEVODOPA
     Dosage: 48.75-195MG (TAKE 1 CAPSULE BY MOUTH FOUR TIMES A DAY)
     Route: 048
     Dates: start: 20240314

REACTIONS (5)
  - Sluggishness [Not Recovered/Not Resolved]
  - Therapeutic product effect variable [Unknown]
  - Drug ineffective [Unknown]
  - Hypoacusis [Unknown]
  - Therapeutic product effect variable [Unknown]

NARRATIVE: CASE EVENT DATE: 20240912
